FAERS Safety Report 18788656 (Version 1)
Quarter: 2021Q1

REPORT INFORMATION
  Report Type: Spontaneous
  Country: NL (occurrence: NL)
  Receive Date: 20210126
  Receipt Date: 20210126
  Transmission Date: 20210419
  Serious: Yes (Other)
  Sender: FDA-Public Use
  Company Number: NL-SAMSUNG BIOEPIS-SB-2021-01409

PATIENT
  Age: 44 Year
  Sex: Female
  Weight: 97.5 kg

DRUGS (2)
  1. ADALIMUMAB [Suspect]
     Active Substance: ADALIMUMAB
     Indication: ANKYLOSING SPONDYLITIS
     Dosage: 40 MG ONCE EVERY 2 WEEKS,?100 MILLIGRAM PER MILLILITER
     Route: 065
     Dates: start: 201908, end: 20200722
  2. LEVOTHYROXINE. [Concomitant]
     Active Substance: LEVOTHYROXINE
     Indication: PRODUCT USED FOR UNKNOWN INDICATION
     Dosage: CAPSULE, 125 UG (MICROGRAM)?UNKNOWN
     Route: 065

REACTIONS (2)
  - Incorrect dose administered [Unknown]
  - Demyelination [Recovering/Resolving]

NARRATIVE: CASE EVENT DATE: 20200703
